FAERS Safety Report 5495749-6 (Version None)
Quarter: 2007Q4

REPORT INFORMATION
  Report Type: 
  Country: None (occurrence: None)
  Receive Date: 20071025
  Receipt Date: 20061130
  Transmission Date: 20080405
  Serious: Yes (Other)
  Sender: FDA-Public Use
  Company Number: A0623586A

PATIENT
  Age: 49 Year
  Sex: Male
  Weight: 77.3 kg

DRUGS (6)
  1. ADVAIR DISKUS 100/50 [Suspect]
     Indication: ASTHMA
     Dosage: 1PUFF TWICE PER DAY
     Route: 048
     Dates: start: 20010101
  2. FLONASE [Concomitant]
     Route: 045
     Dates: start: 20010101
  3. CLARINEX [Concomitant]
     Dosage: 1TAB PER DAY
     Route: 048
     Dates: start: 20010101
  4. ALLERGY SHOTS [Concomitant]
     Dates: start: 20010101
  5. MULTI-VITAMIN [Concomitant]
  6. SODIUM BICARBONATE + SODIUM CHLORIDE [Concomitant]
     Dates: start: 20050101

REACTIONS (5)
  - ASTHMA [None]
  - CHEST DISCOMFORT [None]
  - COUGH [None]
  - DRUG INEFFECTIVE [None]
  - PHARMACEUTICAL PRODUCT COMPLAINT [None]
